FAERS Safety Report 9136192 (Version 1)
Quarter: 2013Q1

REPORT INFORMATION
  Report Type: Spontaneous
  Country: US (occurrence: US)
  Receive Date: 20130304
  Receipt Date: 20130304
  Transmission Date: 20140127
  Serious: No
  Sender: FDA-Public Use
  Company Number: US-ABBOTT-12P-163-0937987-00

PATIENT
  Age: 58 Year
  Sex: Male

DRUGS (6)
  1. ANDROGEL 1% [Suspect]
     Indication: BLOOD TESTOSTERONE DECREASED
     Dosage: 1 PACKET DAILY
     Route: 061
     Dates: start: 201202, end: 20120404
  2. FINASTERIDE [Concomitant]
     Indication: PROPHYLAXIS
  3. NORVASC [Concomitant]
     Indication: HYPERTENSION
     Dosage: NOT REPORTED
  4. NEXIUM [Concomitant]
     Indication: GASTROOESOPHAGEAL REFLUX DISEASE
     Dosage: NOT REPORTED
  5. LEXAPRO [Concomitant]
     Indication: DEPRESSION
     Dosage: NOT REPORTED
  6. XALATAN [Concomitant]
     Indication: GLAUCOMA
     Dosage: NOT REPORTED

REACTIONS (1)
  - Blood follicle stimulating hormone increased [Not Recovered/Not Resolved]
